FAERS Safety Report 7535885-3 (Version None)
Quarter: 2011Q2

REPORT INFORMATION
  Report Type: 
  Country: None (occurrence: None)
  Receive Date: 20110609
  Receipt Date: 20110513
  Transmission Date: 20111010
  Serious: Yes (Other)
  Sender: FDA-Public Use
  Company Number: US-BAYER-201025480NA

PATIENT
  Age: 29 Year
  Sex: Female
  Weight: 68.934 kg

DRUGS (4)
  1. ADDERALL XR 10 [Concomitant]
     Indication: ATTENTION DEFICIT/HYPERACTIVITY DISORDER
     Dosage: UNK
     Dates: start: 20040101, end: 20060101
  2. MULTI-VITAMIN [Concomitant]
     Dosage: UNK
     Dates: start: 20041201, end: 20070501
  3. YASMIN [Suspect]
     Indication: CONTRACEPTION
     Dosage: UNK
     Route: 048
     Dates: start: 20050601, end: 20071101
  4. YAZ [Suspect]
     Indication: CONTRACEPTION
     Dosage: UNK
     Dates: start: 20080501, end: 20100101

REACTIONS (1)
  - GALLBLADDER INJURY [None]
